FAERS Safety Report 16074839 (Version 4)
Quarter: 2019Q2

REPORT INFORMATION
  Report Type: Spontaneous
  Country: BR (occurrence: BR)
  Receive Date: 20190314
  Receipt Date: 20190506
  Transmission Date: 20190711
  Serious: Yes (Other)
  Sender: FDA-Public Use
  Company Number: PHHY2019BR057179

PATIENT
  Sex: Female
  Weight: 62 kg

DRUGS (4)
  1. TEGRETOL [Suspect]
     Active Substance: CARBAMAZEPINE
     Indication: HERPES ZOSTER
     Dosage: 1 DF, Q12H
     Route: 048
     Dates: start: 20190225, end: 20190318
  2. TEGRETOL [Suspect]
     Active Substance: CARBAMAZEPINE
     Dosage: 2 DF, QD
     Route: 048
  3. TEGRETOL [Suspect]
     Active Substance: CARBAMAZEPINE
     Dosage: 1 DF, QD
     Route: 048
  4. TEGRETOL [Suspect]
     Active Substance: CARBAMAZEPINE
     Dosage: 1.5 DF, QD
     Route: 048

REACTIONS (10)
  - Drug intolerance [Unknown]
  - Scar [Not Recovered/Not Resolved]
  - Post herpetic neuralgia [Recovering/Resolving]
  - Immunodeficiency [Not Recovered/Not Resolved]
  - Fatigue [Unknown]
  - Product use in unapproved indication [Unknown]
  - Pain [Recovering/Resolving]
  - Wrong technique in product usage process [Unknown]
  - Weight decreased [Recovering/Resolving]
  - Drug ineffective [Unknown]
